FAERS Safety Report 22868466 (Version 5)
Quarter: 2023Q4

REPORT INFORMATION
  Report Type: Spontaneous
  Country: US (occurrence: US)
  Receive Date: 20230825
  Receipt Date: 20231026
  Transmission Date: 20240110
  Serious: Yes (Hospitalization, Other)
  Sender: FDA-Public Use
  Company Number: US-MALLINCKRODT-MNK202303602

PATIENT
  Age: 69 Year
  Sex: Male

DRUGS (1)
  1. CORTICOTROPIN [Suspect]
     Active Substance: CORTICOTROPIN
     Indication: Systemic lupus erythematosus
     Route: 058
     Dates: start: 202306, end: 20230824

REACTIONS (10)
  - Myocardial infarction [Not Recovered/Not Resolved]
  - Intestinal operation [Unknown]
  - Renal disorder [Unknown]
  - Sepsis [Not Recovered/Not Resolved]
  - Sedation [Unknown]
  - Pruritus [Recovered/Resolved]
  - Skin burning sensation [Unknown]
  - White blood cell count increased [Recovering/Resolving]
  - Cushingoid [Not Recovered/Not Resolved]
  - Hunger [Not Recovered/Not Resolved]

NARRATIVE: CASE EVENT DATE: 20230101
